FAERS Safety Report 12187796 (Version 1)
Quarter: 2016Q1

REPORT INFORMATION
  Report Type: Spontaneous
  Country: US (occurrence: None)
  Receive Date: 20160316
  Receipt Date: 20160316
  Transmission Date: 20160526
  Serious: No
  Sender: FDA-Public Use
  Company Number: None

PATIENT
  Sex: Female

DRUGS (1)
  1. HUMIRA [Suspect]
     Active Substance: ADALIMUMAB
     Route: 058
     Dates: start: 20160209

REACTIONS (7)
  - Stress [None]
  - Fatigue [None]
  - Abdominal pain [None]
  - Haemorrhage [None]
  - Insomnia [None]
  - Impaired healing [None]
  - Drug dose omission [None]
